FAERS Safety Report 10767601 (Version 5)
Quarter: 2017Q2

REPORT INFORMATION
  Report Type: Report from Study
  Country: None (occurrence: BR)
  Receive Date: 20150205
  Receipt Date: 20170411
  Transmission Date: 20170829
  Serious: Yes (Hospitalization, Other)
  Sender: FDA-Public Use
  Company Number: BR-ABBVIE-15K-020-1330924-00

PATIENT
  Age: 29 Year
  Sex: Female
  Weight: 73 kg

DRUGS (12)
  1. HUMIRA [Suspect]
     Active Substance: ADALIMUMAB
     Route: 058
     Dates: start: 201704
  2. HUMIRA [Suspect]
     Active Substance: ADALIMUMAB
     Route: 058
     Dates: end: 201703
  3. HUMIRA [Suspect]
     Active Substance: ADALIMUMAB
     Dosage: WEEK 0
     Route: 058
     Dates: start: 2013, end: 2013
  4. HUMIRA [Suspect]
     Active Substance: ADALIMUMAB
     Dosage: WEEK 2
     Route: 058
  5. HUMIRA [Suspect]
     Active Substance: ADALIMUMAB
     Route: 058
     Dates: end: 201505
  6. HUMIRA [Suspect]
     Active Substance: ADALIMUMAB
     Indication: CROHN^S DISEASE
     Dosage: LOADING DOSE, WEEK ZERO
     Route: 058
     Dates: start: 20120101, end: 20120101
  7. HUMIRA [Suspect]
     Active Substance: ADALIMUMAB
     Dosage: LOADING DOSE, WEEK TWO
     Route: 058
     Dates: start: 201201, end: 201201
  8. BUSCOPAN [Concomitant]
     Active Substance: BUTYLSCOPOLAMINE BROMIDE
     Indication: PAIN
     Route: 048
     Dates: start: 2012
  9. DIPYRONE [Concomitant]
     Active Substance: DIPYRONE
     Indication: PAIN
     Route: 048
     Dates: start: 2012
  10. HUMIRA [Suspect]
     Active Substance: ADALIMUMAB
     Route: 058
  11. AZATHIOPRINE. [Concomitant]
     Active Substance: AZATHIOPRINE
     Indication: CROHN^S DISEASE
     Route: 048
     Dates: start: 20120101
  12. MESALAZINE [Concomitant]
     Active Substance: MESALAMINE
     Indication: COLITIS ULCERATIVE
     Route: 048
     Dates: start: 20120101, end: 201501

REACTIONS (22)
  - Pulmonary oedema [Recovered/Resolved]
  - Anal haemorrhage [Unknown]
  - Implant site pain [Recovering/Resolving]
  - Crohn^s disease [Recovered/Resolved]
  - Post procedural infection [Recovering/Resolving]
  - Procedural complication [Recovering/Resolving]
  - Anal abscess [Not Recovered/Not Resolved]
  - Vomiting [Recovering/Resolving]
  - Ecchymosis [Not Recovered/Not Resolved]
  - Intestinal perforation [Recovering/Resolving]
  - Rectal discharge [Recovering/Resolving]
  - Implant site extravasation [Unknown]
  - Intra-abdominal fluid collection [Recovered/Resolved]
  - Vomiting [Recovered/Resolved]
  - Stomal hernia [Not Recovered/Not Resolved]
  - Proctalgia [Not Recovered/Not Resolved]
  - Anal fistula [Recovering/Resolving]
  - Diarrhoea [Recovered/Resolved]
  - Implant site oedema [Recovering/Resolving]
  - Muscular weakness [Not Recovered/Not Resolved]
  - Post procedural complication [Not Recovered/Not Resolved]
  - Diarrhoea [Recovering/Resolving]

NARRATIVE: CASE EVENT DATE: 2014
